FAERS Safety Report 20102808 (Version 1)
Quarter: 2021Q4

REPORT INFORMATION
  Report Type: Spontaneous
  Country: EG (occurrence: EG)
  Receive Date: 20211123
  Receipt Date: 20211123
  Transmission Date: 20220303
  Serious: Yes (Other)
  Sender: FDA-Public Use
  Company Number: EG-PFIZER INC-202101560827

PATIENT
  Age: 79 Year
  Sex: Male

DRUGS (4)
  1. SUTENT [Suspect]
     Active Substance: SUNITINIB MALATE
     Indication: Gastrointestinal stromal tumour
     Dosage: 50 MG, CYCLIC (4 WEEKS ON THEN 2 WEEKS OFF)
     Route: 048
  2. SUTENT [Suspect]
     Active Substance: SUNITINIB MALATE
     Dosage: 37.5 MG, CYCLIC (12.5 MG 3 TABS DAILY 2 WEEKS ON THEN 1 WEEK OF)
     Route: 048
  3. NEXIUM [Concomitant]
     Active Substance: ESOMEPRAZOLE MAGNESIUM
     Dosage: 40 MG, 2X/DAY (1 TAB BEFORE BREAKFAST AND 1 TAB BEFORE DINNER DAILY)
  4. ONDALENZ [Concomitant]
     Dosage: 8 MG, 1X/DAY (ONCE MORNING DAILY UNDER THE TONGUE)

REACTIONS (1)
  - Immunodeficiency [Unknown]
